FAERS Safety Report 7298387-8 (Version None)
Quarter: 2011Q1

REPORT INFORMATION
  Report Type: 
  Country: None (occurrence: None)
  Receive Date: 20110217
  Receipt Date: 20100531
  Transmission Date: 20110831
  Serious: No
  Sender: FDA-Public Use
  Company Number: US-PFIZER INC-2010054179

PATIENT
  Sex: Female
  Weight: 61.224 kg

DRUGS (1)
  1. XALATAN [Suspect]
     Indication: GLAUCOMA
     Dosage: ONE DROP IN EACH EYE BEDTIME
     Route: 047
     Dates: start: 20091201

REACTIONS (4)
  - EYELID INFECTION [None]
  - BLEPHARITIS [None]
  - ERYTHEMA OF EYELID [None]
  - CHALAZION [None]
